FAERS Safety Report 11103710 (Version 5)
Quarter: 2015Q3

REPORT INFORMATION
  Report Type: Spontaneous
  Country: US (occurrence: US)
  Receive Date: 20150511
  Receipt Date: 20150729
  Transmission Date: 20151125
  Serious: Yes (Hospitalization, Other)
  Sender: FDA-Public Use
  Company Number: US-PFIZER INC-2015151888

PATIENT
  Age: 52 Year
  Sex: Female
  Weight: 75 kg

DRUGS (20)
  1. NORCO [Concomitant]
     Active Substance: ACETAMINOPHEN\HYDROCODONE BITARTRATE
     Indication: PAIN
     Dosage: 5/325 ONCE EVERY 6 HOURS
  2. CARAFATE [Concomitant]
     Active Substance: SUCRALFATE
     Indication: GASTROINTESTINAL HAEMORRHAGE
     Dosage: 1 G, 1X/DAY
  3. EXFORGE HCT [Concomitant]
     Active Substance: AMLODIPINE BESYLATE\HYDROCHLOROTHIAZIDE\VALSARTAN
     Indication: HYPERTENSION
  4. ULTRAM [Concomitant]
     Active Substance: TRAMADOL HYDROCHLORIDE
     Indication: ARTHRALGIA
     Dosage: 50 MG, UNK
     Dates: start: 20130215
  5. NEXIUM [Concomitant]
     Active Substance: ESOMEPRAZOLE MAGNESIUM
     Indication: GASTROINTESTINAL HAEMORRHAGE
     Dosage: 40 MG, 1X/DAY (40MG ONCE DAILY)
     Dates: start: 20130215
  6. LEVEMIR [Concomitant]
     Active Substance: INSULIN DETEMIR
     Dosage: 3 IU, 3X/DAY (BEFORE MEALS)
  7. TRAZODONE [Concomitant]
     Active Substance: TRAZODONE HYDROCHLORIDE
     Indication: SLEEP DISORDER
     Dosage: 50MG (0.5-1) AT BED TIME
  8. ACCUPRIL [Concomitant]
     Active Substance: QUINAPRIL HYDROCHLORIDE
     Dosage: 10 MG, UNK
     Dates: start: 20070801
  9. NOVALOG [Concomitant]
     Dosage: 3 IU, 2X/DAY, AT BREAKFAST AND LUNCH
  10. LYRICA [Suspect]
     Active Substance: PREGABALIN
     Indication: NEUROPATHY PERIPHERAL
     Dosage: 50 MG, 3X/DAY
     Dates: start: 20150215, end: 201502
  11. LYRICA [Suspect]
     Active Substance: PREGABALIN
     Indication: NEURALGIA
  12. LYRICA [Suspect]
     Active Substance: PREGABALIN
     Indication: ARTHRITIS
  13. CRESTOR [Concomitant]
     Active Substance: ROSUVASTATIN CALCIUM
     Indication: BLOOD CHOLESTEROL ABNORMAL
     Dosage: 40 MG, 1X/DAY
     Dates: start: 20070801
  14. EXFORGE HCT [Concomitant]
     Active Substance: AMLODIPINE BESYLATE\HYDROCHLOROTHIAZIDE\VALSARTAN
     Indication: BLOOD PRESSURE ABNORMAL
     Dosage: 10/320/25
     Dates: start: 20070801
  15. ASPIRIN. [Concomitant]
     Active Substance: ASPIRIN
     Dosage: UNK
  16. LYRICA [Suspect]
     Active Substance: PREGABALIN
     Indication: DIABETIC NEUROPATHY
     Dosage: 50 MG, AS NEEDED
     Dates: start: 201502, end: 20150221
  17. LEVEMIR [Concomitant]
     Active Substance: INSULIN DETEMIR
     Indication: DIABETES MELLITUS
     Dosage: 13 IU, 1X/DAY (BEDTIME)
  18. ANUSOL HC [Concomitant]
     Active Substance: HYDROCORTISONE
     Indication: HAEMORRHOIDS
     Dosage: UNK, AS DIRECTED
  19. MIRALAX [Concomitant]
     Active Substance: POLYETHYLENE GLYCOL 3350
     Indication: CONSTIPATION
     Dosage: UNK (AS DIRECTED)
  20. ALLEGRA [Concomitant]
     Active Substance: FEXOFENADINE HYDROCHLORIDE
     Indication: HYPERSENSITIVITY
     Dosage: 1 TWICE DAILY

REACTIONS (14)
  - Abdominal pain upper [Unknown]
  - Agitation [Not Recovered/Not Resolved]
  - Bone pain [Not Recovered/Not Resolved]
  - Pancreatitis [Unknown]
  - Haemorrhoids [Unknown]
  - Oesophageal rupture [Unknown]
  - Insomnia [Not Recovered/Not Resolved]
  - Disease recurrence [Unknown]
  - Weight decreased [Not Recovered/Not Resolved]
  - Mastication disorder [Not Recovered/Not Resolved]
  - Gastric ulcer [Unknown]
  - Vomiting [Not Recovered/Not Resolved]
  - Gastrointestinal haemorrhage [Unknown]
  - Muscular weakness [Unknown]

NARRATIVE: CASE EVENT DATE: 201502
